FAERS Safety Report 12477787 (Version 2)
Quarter: 2016Q4

REPORT INFORMATION
  Report Type: Report from Study
  Country: US (occurrence: US)
  Receive Date: 20160617
  Receipt Date: 20161021
  Transmission Date: 20170207
  Serious: Yes (Death)
  Sender: FDA-Public Use
  Company Number: US-PFIZER INC-2016302855

PATIENT

DRUGS (11)
  1. GEMCITABINE HYDROCHLORIDE. [Suspect]
     Active Substance: GEMCITABINE HYDROCHLORIDE
     Indication: LYMPHOMA
     Dosage: 75 MG/M2, CYCLIC (ON DAYS -8 AND -3 AS A LOADING BOLUS)
     Route: 040
  2. CALCIUM PHOSPHATE [Concomitant]
     Active Substance: CALCIUM PHOSPHATE
     Indication: DENTAL CARE
     Dosage: UNK
  3. PHENYTOIN. [Concomitant]
     Active Substance: PHENYTOIN
     Indication: SUPPORTIVE CARE
     Dosage: UNK, DAILY (300 TO 600 MG DAILY ON DAYS -9 THROUGH -4)
  4. GEMCITABINE HYDROCHLORIDE. [Suspect]
     Active Substance: GEMCITABINE HYDROCHLORIDE
     Dosage: 2700 MG/M2, CYCLIC (OVER 4.5 HOURS (10 MG/M2 PER MINUTE))
     Route: 041
  5. MELPHALAN [Suspect]
     Active Substance: MELPHALAN
     Indication: LYMPHOMA
     Dosage: 60 MG/M2, UNK (OVER 30 MINUTES ON DAYS -3 AND -2)
  6. GLUTAMINE [Concomitant]
     Active Substance: GLUTAMINE
     Indication: DENTAL CARE
     Dosage: UNK
  7. DEXAMETHASONE. [Concomitant]
     Active Substance: DEXAMETHASONE
     Indication: SUPPORTIVE CARE
     Dosage: 8 MG, 2X/DAY,(ON DAYS -11 THROUGH -2)
     Route: 042
  8. AZACITIDINE. [Suspect]
     Active Substance: AZACITIDINE
     Indication: LYMPHOMA
     Dosage: 15 MG/M2, DAILY, (LEVEL 1, DAILY ON DAYS -11 THROUGH -2)
     Route: 042
  9. VORINOSTAT [Suspect]
     Active Substance: VORINOSTAT
     Indication: LYMPHOMA
     Dosage: 1000 MG, CYCLIC (ONCE DAILY ON DAYS -11 THROUGH -2 WITHIN 1 HOUR BEFORE THE START OF CHEMOTHERAPY)
     Route: 048
  10. PALIFERMIN [Concomitant]
     Active Substance: PALIFERMIN
     Indication: DENTAL CARE
     Dosage: UNK
  11. BUSULFAN. [Suspect]
     Active Substance: BUSULFAN
     Indication: LYMPHOMA
     Dosage: 32 MG/M2, OVER 3 HOURS (ON DAYS -8 THROUGH -5)
     Route: 042

REACTIONS (1)
  - Pneumonia respiratory syncytial viral [Fatal]
